FAERS Safety Report 18843220 (Version 1)
Quarter: 2021Q1

REPORT INFORMATION
  Report Type: Report from Study
  Country: US (occurrence: US)
  Receive Date: 20210203
  Receipt Date: 20210203
  Transmission Date: 20210419
  Serious: No
  Sender: FDA-Public Use
  Company Number: US-EXELIXIS-CABO-20027558

PATIENT
  Sex: Female

DRUGS (3)
  1. CABOMETYX [Suspect]
     Active Substance: CABOZANTINIB S-MALATE
     Dosage: 40 MG, QD
     Route: 048
  2. CABOMETYX [Suspect]
     Active Substance: CABOZANTINIB S-MALATE
     Indication: RENAL CANCER
     Dosage: 60 MG, QD
     Route: 048
     Dates: start: 20200126
  3. NEXAVAR [Concomitant]
     Active Substance: SORAFENIB
     Dosage: UNK

REACTIONS (5)
  - Oral disorder [Unknown]
  - Adverse drug reaction [Unknown]
  - Limb discomfort [Unknown]
  - Diarrhoea [Unknown]
  - Blood pressure increased [Unknown]
